FAERS Safety Report 16836957 (Version 2)
Quarter: 2019Q4

REPORT INFORMATION
  Report Type: Spontaneous
  Country: US (occurrence: US)
  Receive Date: 20190923
  Receipt Date: 20191017
  Transmission Date: 20200122
  Serious: Yes (Hospitalization)
  Sender: FDA-Public Use
  Company Number: US-B.I. PHARMACEUTICALS,INC./RIDGEFIELD-2019-US-103246

PATIENT
  Age: 67 Year
  Sex: Female

DRUGS (4)
  1. JARDIANCE [Suspect]
     Active Substance: EMPAGLIFLOZIN
     Indication: TYPE 2 DIABETES MELLITUS
     Dosage: 10MG ONE TABLET DAILY
     Route: 065
     Dates: start: 201907
  2. METHOTREXATE. [Concomitant]
     Active Substance: METHOTREXATE
     Indication: IMMUNE SYSTEM DISORDER
     Route: 065
  3. METOPROLOL. [Concomitant]
     Active Substance: METOPROLOL
     Indication: HYPERTENSION
     Route: 065
  4. LOSARTAN AND HYDROCHLOROTHIAZIDE [Concomitant]
     Active Substance: HYDROCHLOROTHIAZIDE\LOSARTAN POTASSIUM
     Indication: HYPERTENSION
     Dosage: FORM STRENGTH: 100MG/12.5MG
     Route: 065

REACTIONS (8)
  - Heart rate decreased [Not Recovered/Not Resolved]
  - Blood potassium decreased [Not Recovered/Not Resolved]
  - Atrial fibrillation [Recovered/Resolved]
  - Nephrolithiasis [Recovered/Resolved]
  - Pollakiuria [Recovered/Resolved]
  - Hypertension [Not Recovered/Not Resolved]
  - Blood potassium decreased [Recovered/Resolved]
  - Weight decreased [Unknown]

NARRATIVE: CASE EVENT DATE: 201908
